FAERS Safety Report 25875601 (Version 3)
Quarter: 2025Q4

REPORT INFORMATION
  Report Type: Spontaneous
  Country: US (occurrence: US)
  Receive Date: 20251003
  Receipt Date: 20251023
  Transmission Date: 20260117
  Serious: No
  Sender: ROCHE
  Company Number: US-ROCHE-10000397563

PATIENT
  Sex: Female
  Weight: 80.6 kg

DRUGS (39)
  1. XOLAIR PFS [Suspect]
     Active Substance: OMALIZUMAB
     Indication: Asthma
     Dosage: FORM STRENGTH: 300MG/2ML
     Route: 058
     Dates: start: 201810
  2. XOLAIR PFS [Suspect]
     Active Substance: OMALIZUMAB
     Dosage: FORM STRENGTH: 75MG/0.5ML?1 IN 14 DAYS
     Route: 058
     Dates: start: 20250131
  3. XOLAIR PFS [Suspect]
     Active Substance: OMALIZUMAB
     Route: 058
     Dates: start: 20241125
  4. XOLAIR PFS [Suspect]
     Active Substance: OMALIZUMAB
     Route: 058
     Dates: end: 20210113
  5. XOLAIR PFS [Suspect]
     Active Substance: OMALIZUMAB
     Route: 058
     Dates: start: 20250530, end: 20250618
  6. XOLAIR PFS [Suspect]
     Active Substance: OMALIZUMAB
     Route: 058
  7. XOLAIR PFS [Suspect]
     Active Substance: OMALIZUMAB
     Dosage: 150 MG/ML SYRINGE?SIG: INJECT 2 SYRINGE SUBCUTANEOUSLY EVERY 14 DAY
     Route: 058
  8. XOLAIR PFS [Suspect]
     Active Substance: OMALIZUMAB
     Route: 058
     Dates: start: 20171114, end: 20180427
  9. XOLAIR PFS [Suspect]
     Active Substance: OMALIZUMAB
     Dosage: STRENGTH: 150MG
     Route: 058
     Dates: end: 20180426
  10. FASENRA [Concomitant]
     Active Substance: BENRALIZUMAB
     Dosage: FASNERA 30MG/ML SYRINGE: SIG: INJECT 1 ML SUBCUTANEOUSLY EVERY 4 WEEKS FOR 3 DOSES THEN EVERY 8 WEEK
     Route: 058
     Dates: start: 202107, end: 20241125
  11. NUCALA [Concomitant]
     Active Substance: MEPOLIZUMAB
     Dosage: 100MG VIAL SIG: INJECT 100MG SUBCUTANEOUSLY EVERY 4 WEEKS
     Route: 058
     Dates: start: 202107, end: 20241125
  12. TEZSPIRE [Concomitant]
     Active Substance: TEZEPELUMAB-EKKO
     Dosage: 210 MG/1.91 ML SYRINGE (110MG/ML) SIG: INJECT 1 SYRINGE SUBCUTANEOUSLY EVERY 28 DAYS
     Route: 058
     Dates: start: 202107, end: 20241125
  13. EPIPEN [Concomitant]
     Active Substance: EPINEPHRINE
     Indication: Anaphylactic reaction
     Dates: start: 202408
  14. EPIPEN [Concomitant]
     Active Substance: EPINEPHRINE
     Dosage: 2-PAK 0.3 MG AUTO-INJCT MI SIG: INJECT AS DIRECTED FOR ANAPHYLAXIS?QTY: 2, REF: 1
  15. EPIPEN [Concomitant]
     Active Substance: EPINEPHRINE
     Dosage: 03MG/0.3ML INJECTION SYRINGE ONCE AS NEEDED FOR ANAPHYLAXIS
     Route: 030
     Dates: end: 20190801
  16. DUONEB [Concomitant]
     Active Substance: ALBUTEROL SULFATE\IPRATROPIUM BROMIDE
     Dosage: 0.5 MG-3 MG/3 ML SOLN 0.5 MG-3 MG(2.5 MG BASE)/3 MI SIG: INHALE OF 1 ?VIAL VIA NEBULIZER TWICE A DAY
  17. TRELEGY ELLIPTA [Concomitant]
     Active Substance: FLUTICASONE FUROATE\UMECLIDINIUM BROMIDE\VILANTEROL TRIFENATATE
     Dosage: 200-62.5-25 MCG SIG: 1 PUFF DAILY?QTY: 1, REF: 11
  18. VITAMINS [Concomitant]
     Active Substance: VITAMINS
  19. NORTRIPTYLINE HYDROCHLORIDE [Concomitant]
     Active Substance: NORTRIPTYLINE HYDROCHLORIDE
     Dosage: 25 MG CAP
  20. METHOCARBAMOL [Concomitant]
     Active Substance: METHOCARBAMOL
     Indication: Myalgia
     Dosage: 500 MG TABLET (VELLOFF-BURRIS, TARA) SIG: TAKE ONE TABLET BY MOUTH FOUR TIMES DAILY AS NEEDED FOR MU
     Route: 048
  21. METHOCARBAMOL [Concomitant]
     Active Substance: METHOCARBAMOL
     Indication: Muscle spasms
  22. PREGABALIN [Concomitant]
     Active Substance: PREGABALIN
     Dosage: 150 MG CAPSULE SIG: TID
  23. FOLIC ACID [Concomitant]
     Active Substance: FOLIC ACID
     Dosage: 1 MG TABLET SIG: TAKE 1 TABLET BY MOUTH EVERY DAY ONCE DAILY?FOR ALCOHOL INDUCED NEUROPATHY
     Route: 048
  24. VITAMIN B1 [Concomitant]
     Active Substance: THIAMINE HYDROCHLORIDE
     Dosage: 100 MG TABLET
  25. VITAMIN B12 [Concomitant]
     Active Substance: CYANOCOBALAMIN
     Dosage: 1,000 MCG TABLET SIG : TAKE 1 TABLET BY MOUTH EVERY DAY
     Route: 048
  26. ZYRTEC [Concomitant]
     Active Substance: CETIRIZINE HYDROCHLORIDE
     Dosage: 10 MG DAILY
  27. WIXELA INHUB [Concomitant]
     Active Substance: FLUTICASONE PROPIONATE\SALMETEROL XINAFOATE
     Dosage: 500- 50 INHUB MCG/DOSE SIG: INHALE 1 PUFF BY MOUTH TWICE DAILY. RINSE MOUTH AFTER
     Route: 048
  28. SPIRIVA RESPIMAT [Concomitant]
     Active Substance: TIOTROPIUM BROMIDE
     Dosage: 2.5MCG INH MCG/ACTUATION SIG: TAKE 2 PUFFS BY MOUTH ONCE A DAY?QTY: 4, REF: 11
     Route: 048
  29. QVAR REDIHALER [Concomitant]
     Active Substance: BECLOMETHASONE DIPROPIONATE
     Dosage: 80MCG/ACTUATION SIG: INHALE 1 PUFF 2 TIMES DAILY
  30. DECADRON [Concomitant]
     Active Substance: DEXAMETHASONE
     Dosage: 4MG TABLET SIG: 1 TAB DAILY X 3 DAYS
  31. OMEPRAZOLE [Concomitant]
     Active Substance: OMEPRAZOLE
  32. ALBUTEROL [Concomitant]
     Active Substance: ALBUTEROL
  33. DUONEB [Concomitant]
     Active Substance: ALBUTEROL SULFATE\IPRATROPIUM BROMIDE
  34. EPIPEN [Concomitant]
     Active Substance: EPINEPHRINE
  35. TRELEGY ELLIPTA [Concomitant]
     Active Substance: FLUTICASONE FUROATE\UMECLIDINIUM BROMIDE\VILANTEROL TRIFENATATE
  36. CLONAZEPAM [Concomitant]
     Active Substance: CLONAZEPAM
  37. NORTRIPTYLINE [Concomitant]
     Active Substance: NORTRIPTYLINE
  38. METHOCARBAMOL [Concomitant]
     Active Substance: METHOCARBAMOL
  39. PREGABALIN [Concomitant]
     Active Substance: PREGABALIN

REACTIONS (6)
  - Asthma [Unknown]
  - Drug ineffective [Unknown]
  - Eye pruritus [Unknown]
  - Lacrimation increased [Unknown]
  - Rhinorrhoea [Unknown]
  - Erythema [Unknown]
